FAERS Safety Report 10357552 (Version 1)
Quarter: 2014Q3

REPORT INFORMATION
  Report Type: Spontaneous
  Country: US (occurrence: None)
  Receive Date: 20140730
  Receipt Date: 20140730
  Transmission Date: 20150326
  Serious: No
  Sender: FDA-Public Use
  Company Number: CC14-0668

PATIENT
  Age: 37 Year
  Sex: Male

DRUGS (1)
  1. ATRIDOX [Suspect]
     Active Substance: DOXYCYCLINE HYCLATE
     Indication: THERAPEUTIC PROCEDURE
     Dates: start: 20130814

REACTIONS (1)
  - Rash pruritic [None]

NARRATIVE: CASE EVENT DATE: 20130818
